FAERS Safety Report 8567147-X (Version None)
Quarter: 2012Q3

REPORT INFORMATION
  Report Type: 
  Country: None (occurrence: None)
  Receive Date: 20120803
  Receipt Date: 20110825
  Transmission Date: 20120928
  Serious: No
  Sender: FDA-Public Use
  Company Number: US-ABBOTT-11P-163-0849495-00

PATIENT
  Sex: Male
  Weight: 86.26 kg

DRUGS (1)
  1. NIASPAN [Suspect]
     Indication: BLOOD CHOLESTEROL ABNORMAL
     Dosage: 500 MG DAILY AT NIGHT
     Dates: start: 20110801

REACTIONS (5)
  - ERYTHEMA [None]
  - CHILLS [None]
  - FLUSHING [None]
  - SKIN BURNING SENSATION [None]
  - PRURITUS [None]
